FAERS Safety Report 4720188-2 (Version None)
Quarter: 2005Q3

REPORT INFORMATION
  Report Type: 
  Country: None (occurrence: None)
  Receive Date: 20050721
  Receipt Date: 20050708
  Transmission Date: 20060218
  Serious: Yes (Other)
  Sender: FDA-Public Use
  Company Number: US-ROCHE-411187

PATIENT
  Age: 56 Year
  Sex: Male

DRUGS (3)
  1. PEGASYS [Suspect]
     Route: 058
     Dates: start: 20050615
  2. COPEGUS [Suspect]
     Route: 048
     Dates: start: 20050615
  3. ROFERON-A [Suspect]
     Route: 065

REACTIONS (7)
  - ARTHRALGIA [None]
  - FAILURE OF IMPLANT [None]
  - FATIGUE [None]
  - MYALGIA [None]
  - ORAL INFECTION [None]
  - PYREXIA [None]
  - RASH PRURITIC [None]
